FAERS Safety Report 24321171 (Version 1)
Quarter: 2024Q3

REPORT INFORMATION
  Report Type: Report from Study
  Country: US (occurrence: US)
  Receive Date: 20240916
  Receipt Date: 20240916
  Transmission Date: 20241016
  Serious: Yes (Other)
  Sender: ABBVIE
  Company Number: US-ABBVIE-5919780

PATIENT
  Sex: Female

DRUGS (1)
  1. SKYRIZI [Suspect]
     Active Substance: RISANKIZUMAB-RZAA
     Indication: Pustular psoriasis
     Dosage: FORM STRENGTH: 150 MG, DOSAGE: 150MG/ML
     Route: 058

REACTIONS (6)
  - Blindness [Unknown]
  - Visual impairment [Unknown]
  - Skin discolouration [Unknown]
  - Injection site haemorrhage [Unknown]
  - Injection site discharge [Not Recovered/Not Resolved]
  - Off label use [Unknown]
